FAERS Safety Report 9618792 (Version 2)
Quarter: 2013Q4

REPORT INFORMATION
  Report Type: Report from Study
  Country: NL (occurrence: NL)
  Receive Date: 20131014
  Receipt Date: 20131106
  Transmission Date: 20140711
  Serious: Yes (Other)
  Sender: FDA-Public Use
  Company Number: PHHY2013NL114562

PATIENT
  Sex: Female

DRUGS (8)
  1. ACLASTA [Suspect]
     Indication: OSTEOPOROSIS
     Dosage: 5 MG, ONCE PER 52 WEEKS/100 ML
     Route: 042
     Dates: start: 20121011
  2. ACLASTA [Suspect]
     Dosage: 5 MG, ONCE PER 52 WEEKS/100 ML
     Route: 042
     Dates: start: 20131009
  3. TRAMADOL [Concomitant]
     Dosage: 50 MG, 1 TO 2 PER DAY
  4. PANTOPRAZOLE [Concomitant]
     Dosage: 40 MG, QD
  5. ENALAPRIL [Concomitant]
     Dosage: 10 MG, QD
  6. SYNAPAUSE [Concomitant]
     Dosage: 1 MG, QD
     Route: 067
  7. CALCICHEW [Concomitant]
     Dosage: 500 MG/800 IU ONCE DAILY
  8. THYRAX [Concomitant]
     Dosage: 0.025 MG, (1X3)

REACTIONS (3)
  - Pelvic fracture [Not Recovered/Not Resolved]
  - Multiple fractures [Not Recovered/Not Resolved]
  - Bone disorder [Unknown]
